FAERS Safety Report 24982832 (Version 1)
Quarter: 2025Q1

REPORT INFORMATION
  Report Type: Spontaneous
  Country: US (occurrence: US)
  Receive Date: 20250218
  Receipt Date: 20250218
  Transmission Date: 20250408
  Serious: Yes (Hospitalization)
  Sender: PARI RESPIRATORY EQUIPMENT
  Company Number: US-PARI RESPIRATORY EQUIPMENT, INC.-2025PAR00018

PATIENT
  Age: 2 Year
  Sex: Male

DRUGS (10)
  1. KITABIS PAK [Suspect]
     Active Substance: TOBRAMYCIN
     Indication: Respiratory disorder
     Dosage: 300 MG (5 ML), 2X/DAY FOR 28 DAYS, CYCLING EVERY OTHER MONTH - EVEN MONTHS
     Dates: start: 20240118
  2. ALBUTEROL SULFATE [Concomitant]
     Active Substance: ALBUTEROL SULFATE
  3. ALTERRA [Concomitant]
  4. AZITHROMYCIN [Concomitant]
     Active Substance: AZITHROMYCIN
  5. BACLOFEN [Concomitant]
     Active Substance: BACLOFEN
  6. CAYSTON [Concomitant]
     Active Substance: AZTREONAM
  7. CLONIDINE [Concomitant]
     Active Substance: CLONIDINE
  8. EPIDIOLEX [Concomitant]
     Active Substance: CANNABIDIOL
  9. FLONASE ALLERGY RELIEF [Concomitant]
     Active Substance: FLUTICASONE PROPIONATE
  10. FYCOMPA [Concomitant]
     Active Substance: PERAMPANEL

REACTIONS (2)
  - Respiratory disorder [Unknown]
  - Off label use [Not Recovered/Not Resolved]

NARRATIVE: CASE EVENT DATE: 20240118
